FAERS Safety Report 13938675 (Version 8)
Quarter: 2018Q1

REPORT INFORMATION
  Report Type: Report from Study
  Country: ES (occurrence: ES)
  Receive Date: 20170906
  Receipt Date: 20180302
  Transmission Date: 20180508
  Serious: Yes (Hospitalization, Other)
  Sender: FDA-Public Use
  Company Number: ES-AMGEN-ESPSL2017128042

PATIENT
  Age: 81 Year
  Sex: Male

DRUGS (2)
  1. NPLATE [Suspect]
     Active Substance: ROMIPLOSTIM
     Indication: THROMBOCYTOPENIC PURPURA
     Dosage: 500 MCG, QWK
     Route: 065
     Dates: end: 20171117
  2. SINTROM [Concomitant]
     Active Substance: ACENOCOUMAROL
     Dosage: UNK
     Dates: end: 20170823

REACTIONS (10)
  - Autoimmune disorder [Unknown]
  - Eczema [Recovered/Resolved]
  - Atrial fibrillation [Unknown]
  - Drug effect incomplete [Unknown]
  - Epistaxis [Recovered/Resolved]
  - Platelet count abnormal [Unknown]
  - Skin reaction [Recovered/Resolved]
  - Urticaria [Not Recovered/Not Resolved]
  - Toxicity to various agents [Unknown]
  - Influenza [Unknown]

NARRATIVE: CASE EVENT DATE: 2017
